FAERS Safety Report 16720328 (Version 2)
Quarter: 2019Q4

REPORT INFORMATION
  Report Type: Spontaneous
  Country: US (occurrence: US)
  Receive Date: 20190820
  Receipt Date: 20191119
  Transmission Date: 20200122
  Serious: No
  Sender: FDA-Public Use
  Company Number: US-DSJP-DSU-2019-131025

PATIENT

DRUGS (8)
  1. LISINOPRIL                         /00894002/ [Suspect]
     Active Substance: LISINOPRIL
     Indication: HYPERTENSION
     Dosage: 1 DF, QD
     Route: 048
     Dates: start: 201907
  2. ATENOLOL. [Concomitant]
     Active Substance: ATENOLOL
     Indication: HYPERTENSION
     Dosage: UNK
     Route: 048
  3. BENICAR HCT [Suspect]
     Active Substance: HYDROCHLOROTHIAZIDE\OLMESARTAN MEDOXOMIL
     Dosage: (20/12.5 MG TABLET), QD
     Route: 048
     Dates: start: 2018, end: 201907
  4. MICARDIS HCT [Suspect]
     Active Substance: HYDROCHLOROTHIAZIDE\TELMISARTAN
     Indication: HYPERTENSION
     Dosage: 20 MG TABLET, QD
     Route: 048
     Dates: start: 201907, end: 201907
  5. ZOLOFT [Concomitant]
     Active Substance: SERTRALINE HYDROCHLORIDE
     Indication: ANXIETY
     Dosage: UNK
     Route: 048
  6. BENICAR HCT [Suspect]
     Active Substance: HYDROCHLOROTHIAZIDE\OLMESARTAN MEDOXOMIL
     Indication: HYPERTENSION
     Dosage: (20/12.5 MG TABLET), QD
     Route: 048
     Dates: start: 2013, end: 2018
  7. BENICAR HCT [Suspect]
     Active Substance: HYDROCHLOROTHIAZIDE\OLMESARTAN MEDOXOMIL
     Dosage: (20/12.5 MG TABLET), QD
     Route: 048
     Dates: start: 2019, end: 20191101
  8. OLMESARTAN HCT AG [Suspect]
     Active Substance: HYDROCHLOROTHIAZIDE\OLMESARTAN MEDOXOMIL
     Indication: HYPERTENSION
     Dosage: 20/12.5 MG TABLET, QD
     Route: 048
     Dates: start: 2018, end: 2018

REACTIONS (9)
  - Swollen tongue [Unknown]
  - Blood cholesterol increased [Not Recovered/Not Resolved]
  - Product dose omission [Not Recovered/Not Resolved]
  - Paraesthesia [Unknown]
  - Headache [Unknown]
  - Palpitations [Unknown]
  - Fatigue [Unknown]
  - Chest discomfort [Unknown]
  - Nervousness [Unknown]

NARRATIVE: CASE EVENT DATE: 2018
